FAERS Safety Report 11296955 (Version 1)
Quarter: 2015Q3

REPORT INFORMATION
  Report Type: Spontaneous
  Country: US (occurrence: US)
  Receive Date: 20150722
  Receipt Date: 20150722
  Transmission Date: 20151125
  Serious: No
  Sender: FDA-Public Use
  Company Number: US-ELI_LILLY_AND_COMPANY-US201012001751

PATIENT
  Age: 61 Year
  Sex: Female

DRUGS (3)
  1. ASPIRIN. [Concomitant]
     Active Substance: ASPIRIN
     Dosage: 81 MG, DAILY (1/D)
  2. LOSARTAN. [Concomitant]
     Active Substance: LOSARTAN
  3. EFFIENT [Suspect]
     Active Substance: PRASUGREL HYDROCHLORIDE
     Indication: MYOCARDIAL INFARCTION
     Dosage: 10 MG, DAILY (1/D)
     Route: 065
     Dates: start: 20101005

REACTIONS (2)
  - Drug dose omission [Unknown]
  - Road traffic accident [Unknown]

NARRATIVE: CASE EVENT DATE: 201010
